FAERS Safety Report 11892907 (Version 5)
Quarter: 2016Q2

REPORT INFORMATION
  Report Type: Spontaneous
  Country: US (occurrence: US)
  Receive Date: 20160106
  Receipt Date: 20160415
  Transmission Date: 20160815
  Serious: Yes (Life-Threatening, Hospitalization, Other)
  Sender: FDA-Public Use
  Company Number: US-BAYER-2016-002015

PATIENT
  Age: 31 Year
  Sex: Female
  Weight: 131.52 kg

DRUGS (5)
  1. MIRENA [Suspect]
     Active Substance: LEVONORGESTREL
     Indication: CONTRACEPTION
     Dosage: 20 MCG/24HR, CONT
     Route: 015
     Dates: start: 20120629, end: 20130225
  2. PHENTERMINE. [Concomitant]
     Active Substance: PHENTERMINE
     Indication: WEIGHT DECREASED
     Dosage: 37.5 MG, QD
     Route: 048
  3. PRENATAL VITAMINS [Concomitant]
     Active Substance: VITAMINS
     Dosage: UNK
     Dates: start: 2010, end: 201511
  4. CLOMID [Concomitant]
     Active Substance: CLOMIPHENE CITRATE
  5. NAPROXEN. [Concomitant]
     Active Substance: NAPROXEN

REACTIONS (6)
  - Uterine perforation [None]
  - Drug ineffective [None]
  - Ectopic pregnancy with contraceptive device [None]
  - Abdominal pain [None]
  - Infection [None]
  - Device issue [None]

NARRATIVE: CASE EVENT DATE: 2013
